FAERS Safety Report 14070788 (Version 1)
Quarter: 2017Q4

REPORT INFORMATION
  Report Type: Spontaneous
  Country: US (occurrence: US)
  Receive Date: 20171010
  Receipt Date: 20171010
  Transmission Date: 20180321
  Serious: No
  Sender: FDA-Public Use
  Company Number: US-BAUSCH-BL-2017-003771

PATIENT
  Age: 45 Year
  Sex: Female

DRUGS (1)
  1. METRONIDAZOLE. [Suspect]
     Active Substance: METRONIDAZOLE
     Indication: PRODUCT USED FOR UNKNOWN INDICATION
     Dosage: USE AS DIRECTED ONE APPLICATOR FULL VAGINALLY DAILY FOR 7 DAYS AT BEDTIME
     Route: 067
     Dates: start: 20170203

REACTIONS (2)
  - Medication error [Unknown]
  - Off label use [Unknown]
